FAERS Safety Report 7075214-5 (Version None)
Quarter: 2010Q4

REPORT INFORMATION
  Report Type: 
  Country: None (occurrence: None)
  Receive Date: 20101030
  Receipt Date: 20100607
  Transmission Date: 20110411
  Serious: No
  Sender: FDA-Public Use
  Company Number: US-WYE-H15129210

PATIENT
  Age: 90 Year
  Sex: Male
  Weight: 90.8 kg

DRUGS (3)
  1. ADVIL PM [Suspect]
     Indication: INSOMNIA
     Dosage: 2 CAPLETS 1 TIME
     Route: 048
     Dates: start: 20100505, end: 20100505
  2. LEVOTHYROXINE [Concomitant]
  3. METOPROLOL [Concomitant]

REACTIONS (2)
  - DIZZINESS [None]
  - NAUSEA [None]
